FAERS Safety Report 14065781 (Version 1)
Quarter: 2017Q4

REPORT INFORMATION
  Report Type: Spontaneous
  Country: US (occurrence: None)
  Receive Date: 20171006
  Receipt Date: 20171006
  Transmission Date: 20180321
  Serious: Yes (Hospitalization)
  Sender: FDA-Public Use
  Company Number: None

PATIENT
  Age: 47 Year
  Sex: Female

DRUGS (30)
  1. GABAPENTIN. [Concomitant]
     Active Substance: GABAPENTIN
  2. BACLOFEN. [Concomitant]
     Active Substance: BACLOFEN
  3. ATENOLOL. [Concomitant]
     Active Substance: ATENOLOL
  4. SILDENAFIL. [Suspect]
     Active Substance: SILDENAFIL
     Indication: MULTIPLE SCLEROSIS
     Route: 048
     Dates: start: 20161011
  5. WELLBUTRIN [Concomitant]
     Active Substance: BUPROPION HYDROCHLORIDE
  6. KEPPRA [Concomitant]
     Active Substance: LEVETIRACETAM
  7. LISINOPRIL/HCTZ [Concomitant]
     Active Substance: HYDROCHLOROTHIAZIDE\LISINOPRIL
  8. PROVIGIL [Concomitant]
     Active Substance: MODAFINIL
  9. TEGRETOL XR [Concomitant]
     Active Substance: CARBAMAZEPINE
  10. ADVIL [Concomitant]
     Active Substance: IBUPROFEN
  11. ZOCOR [Concomitant]
     Active Substance: SIMVASTATIN
  12. ZOCOR [Concomitant]
     Active Substance: SIMVASTATIN
  13. WARFARIN [Concomitant]
     Active Substance: WARFARIN
  14. SIMVASTATIN. [Concomitant]
     Active Substance: SIMVASTATIN
  15. COREG [Concomitant]
     Active Substance: CARVEDILOL
  16. TOPAMAX [Concomitant]
     Active Substance: TOPIRAMATE
  17. ZOCOR [Concomitant]
     Active Substance: SIMVASTATIN
  18. AVONEX [Concomitant]
     Active Substance: INTERFERON BETA-1A
  19. LISINOPRIL. [Concomitant]
     Active Substance: LISINOPRIL
  20. ASPIRIN. [Concomitant]
     Active Substance: ASPIRIN
  21. AVONEX [Concomitant]
     Active Substance: INTERFERON BETA-1A
  22. ZOLOFT [Concomitant]
     Active Substance: SERTRALINE HYDROCHLORIDE
  23. ALLEGRA-D [Concomitant]
     Active Substance: FEXOFENADINE\PSEUDOEPHEDRINE
  24. TECFIDERA [Concomitant]
     Active Substance: DIMETHYL FUMARATE
  25. AVONEX [Concomitant]
     Active Substance: INTERFERON BETA-1A
  26. LIPITOR [Concomitant]
     Active Substance: ATORVASTATIN CALCIUM
  27. TOPAMAX [Concomitant]
     Active Substance: TOPIRAMATE
  28. ZYRTEC [Concomitant]
     Active Substance: CETIRIZINE HYDROCHLORIDE
  29. REBIF [Concomitant]
     Active Substance: INTERFERON BETA-1A
  30. CARVEDILOL. [Concomitant]
     Active Substance: CARVEDILOL

REACTIONS (3)
  - Upper respiratory tract infection [None]
  - Staphylococcal infection [None]
  - Cardiac operation [None]
